FAERS Safety Report 4627471-X (Version None)
Quarter: 2005Q2

REPORT INFORMATION
  Report Type: 
  Country: None (occurrence: None)
  Receive Date: 20050331
  Receipt Date: 20050321
  Transmission Date: 20051028
  Serious: Yes (Hospitalization)
  Sender: FDA-Public Use
  Company Number: 6013746

PATIENT
  Age: 80 Year
  Sex: Male

DRUGS (12)
  1. CARDENSIEL                   (BISOPROLOL) [Suspect]
     Indication: DRUG USE FOR UNKNOWN INDICATION
     Dosage: 1 DOSAGE FORMS (DOSAGE FORMS, 1 IN 1 D); ORAL
     Route: 048
     Dates: end: 20050223
  2. DIGOXIN [Suspect]
     Indication: DRUG USE FOR UNKNOWN INDICATION
     Dosage: 0, 5 DOSAGE FORMS (0, 5 DOSAGE FORMS, 1 IN 1 D);
     Dates: end: 20050223
  3. PREVISCAN (TABLET) (FLUINDOINE) [Suspect]
     Indication: DRUG USE FOR UNKNOWN INDICATION
     Dosage: 0, 5 DOSAGE FORMS (0, 5 DOSAGE FORMS, 1 IN 1 D); ORAL
     Route: 048
  4. ALDACTONE [Suspect]
     Indication: DRUG USE FOR UNKNOWN INDICATION
     Dosage: 25 MG (25 MG, 1 IN 1 D); ORAL
     Route: 048
     Dates: end: 20050212
  5. FUROSEMIDE [Suspect]
     Indication: DRUG USE FOR UNKNOWN INDICATION
     Dosage: 20 MG (20 MG, 1 IN 1 D); ORAL
     Route: 048
     Dates: start: 20050212, end: 20050218
  6. ZESTRIL [Concomitant]
  7. COLCHIMAX  (COLCHICINE, DICYCLOVERINE HYDROCHLORIDE) [Concomitant]
  8. TRIVASTAL                                (PIRIBEDIL) [Concomitant]
  9. MONICOR (CACHET)                       (ISOSORBIDE MONONITRATE) [Concomitant]
  10. BLISOR                             (PRAVASTATIN SODIUM) [Concomitant]
  11. TORENTAL                  (PENTOXIFLYLLINE) [Suspect]
  12. FONZYLANE                            (BUFLOMEDIL HYDROCHLORIDE) [Concomitant]

REACTIONS (4)
  - ATRIAL FIBRILLATION [None]
  - BRADYARRHYTHMIA [None]
  - HYPERKALAEMIA [None]
  - RENAL FAILURE [None]
